FAERS Safety Report 7051363-2 (Version None)
Quarter: 2010Q4

REPORT INFORMATION
  Report Type: 
  Country: None (occurrence: None)
  Receive Date: 20101013
  Receipt Date: 20100928
  Transmission Date: 20110411
  Serious: Yes (Hospitalization, Disabling)
  Sender: FDA-Public Use
  Company Number: IDA-00442

PATIENT
  Sex: Female

DRUGS (2)
  1. PROPRANOLOL [Suspect]
     Dosage: DAILY DOSE: 20 MG TID; ROUTE OF ADMINISTRATION: ORAL
     Route: 048
  2. NEXIUM [Suspect]
     Dosage: DAILY DOSE: 40 MG DAILY; ROUTE OF ADMINISTRATION: ORAL
     Route: 048

REACTIONS (5)
  - ABASIA [None]
  - DENTAL CARIES [None]
  - LYMPHOEDEMA [None]
  - NEUROPATHY PERIPHERAL [None]
  - TOOTH FRACTURE [None]
